FAERS Safety Report 18136344 (Version 1)
Quarter: 2020Q3

REPORT INFORMATION
  Report Type: Spontaneous
  Country: US (occurrence: US)
  Receive Date: 20200811
  Receipt Date: 20200811
  Transmission Date: 20201103
  Serious: Yes (Other)
  Sender: FDA-Public Use
  Company Number: US-GLENMARK PHARMACEUTICALS-2020GMK048618

PATIENT

DRUGS (5)
  1. HYDROCHLOROTHIAZIDE. [Concomitant]
     Active Substance: HYDROCHLOROTHIAZIDE
     Indication: PRODUCT USED FOR UNKNOWN INDICATION
     Dosage: UNK
     Route: 048
  2. ELIQUIS [Concomitant]
     Active Substance: APIXABAN
     Indication: PRODUCT USED FOR UNKNOWN INDICATION
     Dosage: UNK
     Route: 048
  3. ROSUVASTATIN CALCIUM TABLETS 20 MG [Suspect]
     Active Substance: ROSUVASTATIN CALCIUM
     Indication: PRODUCT USED FOR UNKNOWN INDICATION
     Dosage: 20 MILLIGRAM, OD
     Route: 048
     Dates: start: 201804, end: 20200630
  4. LISINOPRIL. [Concomitant]
     Active Substance: LISINOPRIL
     Indication: PRODUCT USED FOR UNKNOWN INDICATION
     Dosage: UNK
     Route: 048
  5. CARVEDILOL. [Concomitant]
     Active Substance: CARVEDILOL
     Indication: PRODUCT USED FOR UNKNOWN INDICATION
     Dosage: UNK
     Route: 048

REACTIONS (9)
  - Joint noise [Recovering/Resolving]
  - Musculoskeletal discomfort [Recovering/Resolving]
  - Muscle spasms [Recovering/Resolving]
  - Asthenia [Recovering/Resolving]
  - Balance disorder [Recovering/Resolving]
  - Back disorder [Recovering/Resolving]
  - Muscle atrophy [Recovering/Resolving]
  - Gait disturbance [Recovering/Resolving]
  - Arthralgia [Recovering/Resolving]
